FAERS Safety Report 23140344 (Version 2)
Quarter: 2023Q4

REPORT INFORMATION
  Report Type: Spontaneous
  Country: DE (occurrence: DE)
  Receive Date: 20231102
  Receipt Date: 20231212
  Transmission Date: 20240110
  Serious: Yes (Death, Hospitalization)
  Sender: FDA-Public Use
  Company Number: DE-002147023-NVSC2022DE243757

PATIENT
  Sex: Female

DRUGS (2)
  1. FULVESTRANT [Suspect]
     Active Substance: FULVESTRANT
     Indication: Hormone receptor positive HER2 negative breast cancer
     Dosage: 500 MG, Q4W (DAILY DOSE)
     Route: 030
     Dates: start: 20200131, end: 20211112
  2. PANTOPRAZOLE [Concomitant]
     Active Substance: PANTOPRAZOLE
     Indication: Enzyme inhibition
     Dosage: 400 DF
     Route: 048
     Dates: start: 2021

REACTIONS (6)
  - Duodenal stenosis [Fatal]
  - Cachexia [Fatal]
  - Eastern Cooperative Oncology Group performance status worsened [Fatal]
  - Cholestasis [Recovered/Resolved with Sequelae]
  - Impaired healing [Not Recovered/Not Resolved]
  - COVID-19 [Recovered/Resolved with Sequelae]

NARRATIVE: CASE EVENT DATE: 20201030
